FAERS Safety Report 5299353-4 (Version None)
Quarter: 2007Q2

REPORT INFORMATION
  Report Type: 
  Country: None (occurrence: None)
  Receive Date: 20070417
  Receipt Date: 20070403
  Transmission Date: 20071010
  Serious: Yes (Hospitalization)
  Sender: FDA-Public Use
  Company Number: FR-ELI_LILLY_AND_COMPANY-FR200704000380

PATIENT
  Age: 87 Year
  Sex: Female

DRUGS (10)
  1. PROZAC [Suspect]
     Route: 048
     Dates: start: 20050102, end: 20070305
  2. NOCTRAN 10 [Concomitant]
     Dosage: UNK, UNK
     Route: 048
     Dates: start: 20060101
  3. IMOVANE [Concomitant]
     Dosage: UNK, UNK
     Route: 048
     Dates: start: 20060101
  4. TAREG [Concomitant]
     Dosage: UNK, UNK
     Route: 048
     Dates: start: 20060101
  5. TANAKAN [Concomitant]
     Dosage: UNK, UNK
     Route: 048
     Dates: start: 20060101
  6. TARDYFERON [Concomitant]
     Dosage: UNK, UNK
     Route: 048
     Dates: start: 20060101
  7. LOVENOX [Concomitant]
     Route: 058
     Dates: start: 20060101
  8. BURINEX [Concomitant]
     Dosage: 1 MG, DAILY (1/D)
     Route: 048
     Dates: start: 20060301, end: 20060401
  9. LASIX [Concomitant]
     Route: 048
     Dates: start: 20060401
  10. MEDROL [Concomitant]
     Indication: ARTHROPATHY
     Dosage: 2 MG, QOD
     Route: 048
     Dates: start: 20060601

REACTIONS (2)
  - PEMPHIGOID [None]
  - PRURITUS [None]
